FAERS Safety Report 21481007 (Version 1)
Quarter: 2022Q4

REPORT INFORMATION
  Report Type: Spontaneous
  Country: US (occurrence: US)
  Receive Date: 20221019
  Receipt Date: 20221019
  Transmission Date: 20230113
  Serious: No
  Sender: FDA-Public Use
  Company Number: US-MAYNE PHARMA-2022MYN001280

PATIENT
  Sex: Female

DRUGS (2)
  1. ERRIN [Suspect]
     Active Substance: NORETHINDRONE
     Indication: Contraception
     Route: 065
  2. TEPEZZA [Suspect]
     Active Substance: TEPROTUMUMAB-TRBW
     Indication: Product used for unknown indication
     Route: 065

REACTIONS (2)
  - Amenorrhoea [Unknown]
  - Heavy menstrual bleeding [Unknown]
